FAERS Safety Report 14519191 (Version 1)
Quarter: 2018Q1

REPORT INFORMATION
  Report Type: Spontaneous
  Country: RU (occurrence: RU)
  Receive Date: 20180212
  Receipt Date: 20180212
  Transmission Date: 20180509
  Serious: Yes (Other)
  Sender: FDA-Public Use
  Company Number: RU-PFIZER INC-2018057649

PATIENT
  Age: 71 Year
  Sex: Female

DRUGS (1)
  1. LIPRIMAR [Suspect]
     Active Substance: ATORVASTATIN CALCIUM

REACTIONS (1)
  - Thrombocytopenia [Unknown]
